FAERS Safety Report 23050967 (Version 4)
Quarter: 2025Q2

REPORT INFORMATION
  Report Type: Spontaneous
  Country: US (occurrence: US)
  Receive Date: 20231010
  Receipt Date: 20250409
  Transmission Date: 20250717
  Serious: No
  Sender: SANOFI AVENTIS
  Company Number: US-SA-SAC20231003001851

PATIENT
  Age: 66 Year
  Sex: Male

DRUGS (15)
  1. DUPIXENT [Suspect]
     Active Substance: DUPILUMAB
     Indication: Dermatitis atopic
     Dosage: 300 MG, QOW
     Route: 058
  2. DUPIXENT [Suspect]
     Active Substance: DUPILUMAB
     Indication: Insulin therapy
     Dosage: 300 MG, QOW
     Route: 058
  3. TIZANIDINE HYDROCHLORIDE [Concomitant]
     Active Substance: TIZANIDINE HYDROCHLORIDE
  4. METFORMIN HYDROCHLORIDE [Concomitant]
     Active Substance: METFORMIN HYDROCHLORIDE
  5. ROSUVASTATIN [Concomitant]
     Active Substance: ROSUVASTATIN
  6. ONDANSETRON [Concomitant]
     Active Substance: ONDANSETRON
  7. LOSARTAN POTASSIUM [Concomitant]
     Active Substance: LOSARTAN POTASSIUM
  8. IPRATROPIUM [Concomitant]
     Active Substance: IPRATROPIUM
  9. LEVOTHYROXINE [Concomitant]
     Active Substance: LEVOTHYROXINE
  10. AMLODIPINE BESYLATE [Concomitant]
     Active Substance: AMLODIPINE BESYLATE
  11. PANTOPRAZOLE [Concomitant]
     Active Substance: PANTOPRAZOLE
  12. TOUJEO [Concomitant]
     Active Substance: INSULIN GLARGINE
  13. GABAPENTIN [Concomitant]
     Active Substance: GABAPENTIN
  14. FAMOTIDINE [Concomitant]
     Active Substance: FAMOTIDINE
  15. KETOCONAZOLE [Concomitant]
     Active Substance: KETOCONAZOLE

REACTIONS (19)
  - Rosacea [Unknown]
  - Throat irritation [Unknown]
  - Erythema [Unknown]
  - Dry skin [Unknown]
  - Skin swelling [Unknown]
  - Skin discomfort [Unknown]
  - Tinea pedis [Unknown]
  - Skin haemorrhage [Unknown]
  - Pain of skin [Unknown]
  - Scab [Unknown]
  - Skin exfoliation [Unknown]
  - Skin fissures [Unknown]
  - Condition aggravated [Unknown]
  - Skin ulcer [Recovered/Resolved]
  - Skin discolouration [Unknown]
  - Rash [Unknown]
  - Radical prostatectomy [Unknown]
  - Inappropriate schedule of product administration [Unknown]
  - Product use in unapproved indication [Unknown]

NARRATIVE: CASE EVENT DATE: 20230928
